FAERS Safety Report 12591762 (Version 1)
Quarter: 2016Q3

REPORT INFORMATION
  Report Type: Spontaneous
  Country: US (occurrence: US)
  Receive Date: 20160726
  Receipt Date: 20160726
  Transmission Date: 20161109
  Serious: No
  Sender: FDA-Public Use
  Company Number: US-UNITED THERAPEUTICS-UNT-2016-001206

PATIENT
  Age: 9 Year
  Sex: Female
  Weight: 28.57 kg

DRUGS (8)
  1. REMODULIN [Suspect]
     Active Substance: TREPROSTINIL
     Dosage: 0.144 ?G/KG/MIN
     Route: 058
     Dates: start: 20160119, end: 20160414
  2. REMODULIN [Suspect]
     Active Substance: TREPROSTINIL
     Indication: PULMONARY ARTERIAL HYPERTENSION
     Dosage: 0.00125 ?G/KG, CONTINUING
     Route: 058
     Dates: start: 20121003, end: 201603
  3. REMODULIN [Suspect]
     Active Substance: TREPROSTINIL
     Indication: PULMONARY HYPERTENSION
     Dosage: 0.0075 ?G/KG, CONTINUING
     Route: 058
  4. TYVASO [Suspect]
     Active Substance: TREPROSTINIL
     Indication: PRODUCT USED FOR UNKNOWN INDICATION
     Dosage: 6-54 MICROGRAMS, QID
     Dates: start: 20131202, end: 201602
  5. REVATIO [Suspect]
     Active Substance: SILDENAFIL CITRATE
     Indication: PRODUCT USED FOR UNKNOWN INDICATION
     Route: 065
  6. LETAIRIS [Suspect]
     Active Substance: AMBRISENTAN
     Indication: PULMONARY HYPERTENSION
     Dosage: 5 MG, QD
     Route: 048
     Dates: start: 20121121
  7. LETAIRIS [Suspect]
     Active Substance: AMBRISENTAN
     Dosage: UNK
  8. LETAIRIS [Suspect]
     Active Substance: AMBRISENTAN
     Dosage: UNK
     Route: 048

REACTIONS (4)
  - Infusion site pain [Unknown]
  - Infusion site rash [Unknown]
  - Product use issue [Unknown]
  - Infusion site oedema [Recovered/Resolved]

NARRATIVE: CASE EVENT DATE: 201601
